FAERS Safety Report 12239689 (Version 1)
Quarter: 2016Q2

REPORT INFORMATION
  Report Type: Report from Study
  Country: US (occurrence: US)
  Receive Date: 20160405
  Receipt Date: 20160405
  Transmission Date: 20160815
  Serious: No
  Sender: FDA-Public Use
  Company Number: GXBR2016US000965

PATIENT
  Sex: Male

DRUGS (2)
  1. MULTI-VIT [Concomitant]
     Active Substance: VITAMINS
     Dosage: UNK DF, QD
  2. OMNITROPE [Suspect]
     Active Substance: SOMATROPIN
     Indication: GROWTH HORMONE DEFICIENCY
     Dosage: 0.12 ML, QD
     Route: 065
     Dates: start: 20160310

REACTIONS (1)
  - Injection site bruising [Not Recovered/Not Resolved]
